FAERS Safety Report 7877437-1 (Version None)
Quarter: 2011Q4

REPORT INFORMATION
  Report Type: 
  Country: None (occurrence: None)
  Receive Date: 20111031
  Receipt Date: 20111027
  Transmission Date: 20120403
  Serious: Yes (Life-Threatening, Hospitalization, Other)
  Sender: FDA-Public Use
  Company Number: GR-AMGEN-GRCCT2011023961

PATIENT
  Age: 69 Year
  Sex: Male
  Weight: 73 kg

DRUGS (10)
  1. METFORMIN HYDROCHLORIDE [Concomitant]
     Indication: DIABETES MELLITUS
     Dosage: UNK UNK, BID
     Route: 048
  2. OXALIPLAN [Concomitant]
     Dosage: 130 MG/M2, Q3WK
     Dates: start: 20110405, end: 20110405
  3. BISOPROLOL FUMARATE [Concomitant]
     Indication: HYPERTENSION
     Dosage: 10 MG, BID
     Route: 048
     Dates: start: 19950101
  4. DIOVAN [Concomitant]
     Indication: HYPERTENSION
     Dosage: 80 MG, BID
     Route: 048
     Dates: start: 20040701, end: 20110421
  5. ONDANSETRON [Concomitant]
     Dosage: 8 MG, BID
     Route: 042
     Dates: start: 20110405, end: 20110405
  6. DIAMICRON MR [Concomitant]
     Indication: TYPE 2 DIABETES MELLITUS
     Dosage: 30 MG, UNK
     Route: 048
     Dates: start: 19950101, end: 20110421
  7. OMACOR [Concomitant]
     Indication: HYPERCHOLESTEROLAEMIA
     Dosage: UNK
     Route: 048
     Dates: start: 20090701
  8. PANITUMUMAB [Suspect]
     Indication: COLORECTAL CANCER METASTATIC
     Dosage: 9 MG/KG, Q3WK
     Dates: start: 20110405, end: 20110405
  9. XELODA [Concomitant]
     Indication: COLORECTAL CANCER METASTATIC
     Dosage: 2000 MG/M2, Q3WK
     Route: 048
     Dates: start: 20110405, end: 20110418
  10. BISOPROLOL FUMARATE [Concomitant]
     Dosage: UNK
     Dates: start: 19950101, end: 20110420

REACTIONS (1)
  - PULMONARY EMBOLISM [None]
